FAERS Safety Report 24540804 (Version 4)
Quarter: 2025Q2

REPORT INFORMATION
  Report Type: Spontaneous
  Country: US (occurrence: US)
  Receive Date: 20241023
  Receipt Date: 20250402
  Transmission Date: 20250717
  Serious: Yes (Other)
  Sender: BRISTOL MYERS SQUIBB
  Company Number: US-BRISTOL-MYERS SQUIBB COMPANY-2024-164073

PATIENT
  Age: 72 Year
  Sex: Male

DRUGS (23)
  1. REVLIMID [Suspect]
     Active Substance: LENALIDOMIDE
     Indication: Plasma cell myeloma
     Dosage: FREQUENCY: DAILY FOR DAY 1-21 THEN 7 DAYS OFF
     Route: 048
     Dates: start: 20240910
  2. REVLIMID [Suspect]
     Active Substance: LENALIDOMIDE
     Route: 048
     Dates: start: 20240528
  3. REVLIMID [Suspect]
     Active Substance: LENALIDOMIDE
     Dosage: FREQUENCY: DAILY FOR DAY 1-21 THEN 7 DAYS OFF
     Route: 048
  4. REVLIMID [Suspect]
     Active Substance: LENALIDOMIDE
     Route: 048
     Dates: start: 20240910, end: 20250217
  5. CIALIS [Concomitant]
     Active Substance: TADALAFIL
     Indication: Product used for unknown indication
  6. ADULT MULTIVITAMIN [Concomitant]
     Indication: Product used for unknown indication
  7. CHOLECALCIFEROL [Concomitant]
     Active Substance: CHOLECALCIFEROL
     Indication: Product used for unknown indication
  8. ASPIRIN [Concomitant]
     Active Substance: ASPIRIN
     Indication: Product used for unknown indication
  9. CETIRIZINE HYDROCHLORIDE [Concomitant]
     Active Substance: CETIRIZINE HYDROCHLORIDE
     Indication: Product used for unknown indication
  10. TYLENOL [Concomitant]
     Active Substance: ACETAMINOPHEN
     Indication: Product used for unknown indication
  11. DARZALEX FASPRO [Concomitant]
     Active Substance: DARATUMUMAB\HYALURONIDASE-FIHJ
     Indication: Product used for unknown indication
  12. DEXAMETHASONE [Concomitant]
     Active Substance: DEXAMETHASONE
     Indication: Product used for unknown indication
  13. DEXAMETHASONE [Concomitant]
     Active Substance: DEXAMETHASONE
  14. ACYCLOVIR [Concomitant]
     Active Substance: ACYCLOVIR
     Indication: Product used for unknown indication
  15. VELCADE [Concomitant]
     Active Substance: BORTEZOMIB
     Indication: Product used for unknown indication
  16. METOPROLOL SUCCINATE [Concomitant]
     Active Substance: METOPROLOL SUCCINATE
     Indication: Product used for unknown indication
  17. ATORVASTATIN [Concomitant]
     Active Substance: ATORVASTATIN
     Indication: Product used for unknown indication
  18. LISINOPRIL [Concomitant]
     Active Substance: LISINOPRIL
     Indication: Product used for unknown indication
  19. AMLODIPINE BESYLATE [Concomitant]
     Active Substance: AMLODIPINE BESYLATE
     Indication: Product used for unknown indication
  20. DOXAZOSIN [Concomitant]
     Active Substance: DOXAZOSIN MESYLATE
     Indication: Product used for unknown indication
  21. CLOPIDOGREL [Concomitant]
     Active Substance: CLOPIDOGREL BISULFATE
     Indication: Product used for unknown indication
  22. CALCIUM [Concomitant]
     Active Substance: CALCIUM
     Indication: Product used for unknown indication
  23. ALBUTEROL\IPRATROPIUM [Concomitant]
     Active Substance: ALBUTEROL\IPRATROPIUM
     Indication: Product used for unknown indication

REACTIONS (6)
  - Fatigue [Recovering/Resolving]
  - Diarrhoea [Recovering/Resolving]
  - Cerebrovascular accident [Unknown]
  - Seizure [Recovering/Resolving]
  - Off label use [Unknown]
  - Blood calcium decreased [Recovering/Resolving]

NARRATIVE: CASE EVENT DATE: 20240101
